FAERS Safety Report 7676681-6 (Version None)
Quarter: 2011Q3

REPORT INFORMATION
  Report Type: 
  Country: None (occurrence: None)
  Receive Date: 20110811
  Receipt Date: 20110809
  Transmission Date: 20111222
  Serious: Yes (Hospitalization, Other)
  Sender: FDA-Public Use
  Company Number: FR-PFIZER INC-2011182034

PATIENT
  Age: 100 Year
  Sex: Female

DRUGS (1)
  1. ZOLOFT [Suspect]
     Dosage: 50 MG, DAILY
     Route: 048
     Dates: start: 20101123, end: 20110525

REACTIONS (4)
  - HYPOKALAEMIA [None]
  - VOMITING [None]
  - DIARRHOEA [None]
  - ABDOMINAL PAIN [None]
